FAERS Safety Report 4596162-6 (Version None)
Quarter: 2005Q1

REPORT INFORMATION
  Report Type: 
  Country: None (occurrence: None)
  Receive Date: 20050302
  Receipt Date: 20050222
  Transmission Date: 20050727
  Serious: Yes (Hospitalization)
  Sender: FDA-Public Use
  Company Number: JP-ROCHE-396764

PATIENT
  Age: 73 Year
  Sex: Female

DRUGS (9)
  1. TAMIFLU [Suspect]
     Route: 048
     Dates: start: 20050218
  2. NORVASC [Concomitant]
     Route: 048
  3. ASPIRIN [Concomitant]
     Route: 048
  4. ACTOS [Concomitant]
     Route: 048
  5. NU-LOTAN [Concomitant]
     Route: 048
  6. GLYBURIDE [Concomitant]
     Route: 048
  7. MUCOSTA [Concomitant]
     Route: 048
  8. DEPAS [Concomitant]
     Route: 048
  9. CALONAL [Concomitant]
     Dosage: TAKEN AS NEEDED

REACTIONS (5)
  - ASPARTATE AMINOTRANSFERASE INCREASED [None]
  - BLOOD CREATINE PHOSPHOKINASE INCREASED [None]
  - BLOOD LACTATE DEHYDROGENASE INCREASED [None]
  - HYPOGLYCAEMIA [None]
  - HYPOKALAEMIA [None]
